FAERS Safety Report 10469305 (Version 1)
Quarter: 2014Q3

REPORT INFORMATION
  Report Type: Spontaneous
  Country: US (occurrence: None)
  Receive Date: 20140922
  Receipt Date: 20140922
  Transmission Date: 20150326
  Serious: Yes (Other)
  Sender: FDA-Public Use
  Company Number: None

PATIENT
  Age: 68 Year
  Sex: Male
  Weight: 78.02 kg

DRUGS (1)
  1. CRESTOR [Suspect]
     Active Substance: ROSUVASTATIN CALCIUM
     Indication: HYPERCHOLESTEROLAEMIA
     Dosage: 1 DAILY
     Route: 048
     Dates: start: 20090301, end: 20140721

REACTIONS (4)
  - Myalgia [None]
  - Respiratory failure [None]
  - Chronic obstructive pulmonary disease [None]
  - Dyspnoea [None]

NARRATIVE: CASE EVENT DATE: 20120101
